FAERS Safety Report 21121959 (Version 3)
Quarter: 2023Q1

REPORT INFORMATION
  Report Type: Spontaneous
  Country: US (occurrence: US)
  Receive Date: 20220722
  Receipt Date: 20230206
  Transmission Date: 20230418
  Serious: No
  Sender: FDA-Public Use
  Company Number: US-SA-SAC20220715001717

PATIENT
  Age: 20 Year
  Sex: Female

DRUGS (1)
  1. DUPIXENT [Suspect]
     Active Substance: DUPILUMAB
     Indication: Eosinophilic oesophagitis
     Dosage: 300 MG, QOW
     Route: 058
     Dates: start: 20220713

REACTIONS (4)
  - Injection site pain [Not Recovered/Not Resolved]
  - Injection site vesicles [Recovered/Resolved]
  - Lack of injection site rotation [Unknown]
  - Off label use [Unknown]

NARRATIVE: CASE EVENT DATE: 20220713
